FAERS Safety Report 7933955-9 (Version None)
Quarter: 2011Q4

REPORT INFORMATION
  Report Type: 
  Country: None (occurrence: None)
  Receive Date: 20111122
  Receipt Date: 20111117
  Transmission Date: 20120403
  Serious: Yes (Hospitalization)
  Sender: FDA-Public Use
  Company Number: SE-ROCHE-1014106

PATIENT
  Age: 62 Year
  Sex: Male

DRUGS (1)
  1. MABTHERA [Suspect]
     Indication: RHEUMATOID ARTHRITIS
     Dosage: 1GM1 GM1
     Route: 042
     Dates: start: 20110706, end: 20110721

REACTIONS (1)
  - PNEUMOCYSTIS JIROVECI INFECTION [None]
